FAERS Safety Report 7036153-9 (Version None)
Quarter: 2010Q4

REPORT INFORMATION
  Report Type: 
  Country: None (occurrence: None)
  Receive Date: 20101008
  Receipt Date: 20100505
  Transmission Date: 20110411
  Serious: No
  Sender: FDA-Public Use
  Company Number: US-BRISTOL-MYERS SQUIBB COMPANY-15055486

PATIENT
  Age: 92 Year
  Sex: Female
  Weight: 63 kg

DRUGS (11)
  1. AVAPRO [Suspect]
     Indication: HYPERTENSION
     Route: 048
     Dates: start: 20100408
  2. ALBUTEROL [Concomitant]
  3. LIPITOR [Concomitant]
  4. ATENOLOL [Concomitant]
  5. ASPIRIN [Concomitant]
  6. VITAMIN B6 [Concomitant]
  7. VITAMIN B-12 [Concomitant]
  8. FOLIC ACID [Concomitant]
  9. FISH OIL [Concomitant]
  10. ASCORBIC ACID [Concomitant]
  11. PRESERVISION AREDS [Concomitant]

REACTIONS (3)
  - DISCOMFORT [None]
  - DIZZINESS [None]
  - DYSPNOEA [None]
